FAERS Safety Report 18415980 (Version 2)
Quarter: 2021Q1

REPORT INFORMATION
  Report Type: Spontaneous
  Country: US (occurrence: US)
  Receive Date: 20201022
  Receipt Date: 20210203
  Transmission Date: 20210419
  Serious: No
  Sender: FDA-Public Use
  Company Number: US-BRISTOL-MYERS SQUIBB COMPANY-BMS-2020-088280

PATIENT

DRUGS (3)
  1. NULOJIX [Suspect]
     Active Substance: BELATACEPT
     Indication: HAEMOLYTIC URAEMIC SYNDROME
  2. NULOJIX [Suspect]
     Active Substance: BELATACEPT
     Indication: RENAL TRANSPLANT
     Dosage: 600 MILLIGRAM, Q4WK
     Route: 042
  3. SOLIRIS [Concomitant]
     Active Substance: ECULIZUMAB
     Indication: PRODUCT USED FOR UNKNOWN INDICATION
     Dosage: UNK
     Route: 065

REACTIONS (3)
  - Product dose omission issue [Unknown]
  - Dehydration [Unknown]
  - Product storage error [Unknown]

NARRATIVE: CASE EVENT DATE: 20201007
